FAERS Safety Report 5966772-X (Version None)
Quarter: 2008Q4

REPORT INFORMATION
  Report Type: 
  Country: None (occurrence: None)
  Receive Date: 20081125
  Receipt Date: 20081118
  Transmission Date: 20090506
  Serious: Yes (Hospitalization, Other)
  Sender: FDA-Public Use
  Company Number: US-ALLERGAN-0814581US

PATIENT
  Sex: Female

DRUGS (1)
  1. BOTOX [Suspect]
     Indication: DYSTONIA
     Dosage: UNK, UNK
     Route: 030

REACTIONS (3)
  - DYSPHAGIA [None]
  - MYOCARDITIS [None]
  - OESOPHAGEAL DILATATION [None]
